FAERS Safety Report 18037974 (Version 2)
Quarter: 2022Q2

REPORT INFORMATION
  Report Type: Spontaneous
  Country: FR (occurrence: FR)
  Receive Date: 20200717
  Receipt Date: 20220516
  Transmission Date: 20220721
  Serious: Yes (Hospitalization)
  Sender: FDA-Public Use
  Company Number: None

PATIENT
  Age: 49 Year
  Sex: Female
  Weight: 86 kg

DRUGS (4)
  1. NORVIR [Interacting]
     Active Substance: RITONAVIR
     Indication: HIV infection
     Route: 048
  2. REYATAZ [Interacting]
     Active Substance: ATAZANAVIR SULFATE
     Indication: HIV infection
     Route: 048
  3. KENACORT [Interacting]
     Active Substance: TRIAMCINOLONE
     Indication: Product used for unknown indication
     Route: 065
     Dates: start: 202003, end: 202003
  4. TIVICAY [Concomitant]
     Active Substance: DOLUTEGRAVIR SODIUM
     Indication: HIV infection
     Route: 048

REACTIONS (1)
  - Cushing^s syndrome [Recovered/Resolved]

NARRATIVE: CASE EVENT DATE: 20200401
